FAERS Safety Report 5497193-4 (Version None)
Quarter: 2007Q4

REPORT INFORMATION
  Report Type: 
  Country: None (occurrence: None)
  Receive Date: 20071025
  Receipt Date: 20060905
  Transmission Date: 20080405
  Serious: No
  Sender: FDA-Public Use
  Company Number: A0619150A

PATIENT
  Age: 8 Year
  Sex: Male

DRUGS (1)
  1. ADVAIR DISKUS 100/50 [Suspect]
     Indication: ASTHMA
     Route: 055
     Dates: start: 20060803, end: 20060827

REACTIONS (3)
  - CHOKING SENSATION [None]
  - DYSPNOEA [None]
  - HYPERSENSITIVITY [None]
